FAERS Safety Report 9098101 (Version 2)
Quarter: 2013Q1

REPORT INFORMATION
  Report Type: Spontaneous
  Country: US (occurrence: US)
  Receive Date: 20130213
  Receipt Date: 20130304
  Transmission Date: 20140127
  Serious: No
  Sender: FDA-Public Use
  Company Number: US-ELI_LILLY_AND_COMPANY-US201302001855

PATIENT
  Age: 67 Year
  Sex: Male

DRUGS (3)
  1. HUMALOG LISPRO [Suspect]
     Indication: TYPE 1 DIABETES MELLITUS
     Dosage: 12 U, QID
     Route: 058
     Dates: start: 201106
  2. HUMALOG LISPRO [Suspect]
     Dosage: UNK, PRN
     Route: 058
  3. LANTUS [Concomitant]

REACTIONS (3)
  - Blood glucose increased [Recovering/Resolving]
  - Blood glucose increased [Unknown]
  - Drug effect incomplete [Unknown]
